FAERS Safety Report 24866689 (Version 1)
Quarter: 2025Q1

REPORT INFORMATION
  Report Type: Spontaneous
  Country: ES (occurrence: ES)
  Receive Date: 20250121
  Receipt Date: 20250121
  Transmission Date: 20250409
  Serious: Yes (Hospitalization)
  Sender: TEVA
  Company Number: None

PATIENT
  Age: 73 Year
  Sex: Male

DRUGS (2)
  1. CLOPIDOGREL [Suspect]
     Active Substance: CLOPIDOGREL BISULFATE
     Indication: Cardiovascular event prophylaxis
     Dosage: 1-0-0; CLOPIDOGREL (7300A)
     Route: 048
     Dates: start: 20241001, end: 20241123
  2. ASPIRIN [Suspect]
     Active Substance: ASPIRIN
     Indication: Cardiovascular event prophylaxis
     Dosage: 0-1-0
     Route: 048
     Dates: start: 20241001, end: 20241123

REACTIONS (2)
  - Subdural haemorrhage [Recovered/Resolved]
  - Subarachnoid haemorrhage [Recovered/Resolved]

NARRATIVE: CASE EVENT DATE: 20241123
